FAERS Safety Report 12543105 (Version 1)
Quarter: 2016Q3

REPORT INFORMATION
  Report Type: Spontaneous
  Country: PL (occurrence: PL)
  Receive Date: 20160711
  Receipt Date: 20160711
  Transmission Date: 20161109
  Serious: Yes (Other)
  Sender: FDA-Public Use
  Company Number: PL-009507513-1603POL005981

PATIENT
  Sex: Female

DRUGS (4)
  1. SINEMET CR [Suspect]
     Active Substance: CARBIDOPA\LEVODOPA
     Dosage: 4 X 1 TABLET (STRENGTH: 50/200 MG)
     Route: 048
     Dates: start: 2015, end: 2016
  2. SINEMET CR [Suspect]
     Active Substance: CARBIDOPA\LEVODOPA
     Dosage: 3.5 TABLET (STENGTH: 50/200 MG) A DAY, TOTAL DAILY DOSE: 175/700 MG
     Route: 048
     Dates: start: 2016, end: 20160324
  3. SINEMET CR [Suspect]
     Active Substance: CARBIDOPA\LEVODOPA
     Indication: PARKINSON^S DISEASE
     Dosage: 1 TABLET (STRENGTH: 50/200 MG), EVERY 6 HOURS
     Route: 048
     Dates: start: 201505, end: 2015
  4. MADOPAR [Concomitant]
     Active Substance: BENSERAZIDE HYDROCHLORIDE\LEVODOPA
     Indication: PARKINSON^S DISEASE
     Dosage: UNK
     Route: 048
     Dates: start: 2015, end: 201505

REACTIONS (10)
  - Depressive symptom [Not Recovered/Not Resolved]
  - Wrong technique in product usage process [Unknown]
  - Amoebiasis [Unknown]
  - Arthralgia [Recovered/Resolved]
  - Malaise [Not Recovered/Not Resolved]
  - Giardiasis [Unknown]
  - Pollakiuria [Not Recovered/Not Resolved]
  - Insomnia [Not Recovered/Not Resolved]
  - Hypoaesthesia [Not Recovered/Not Resolved]
  - Off label use [Unknown]

NARRATIVE: CASE EVENT DATE: 2015
